FAERS Safety Report 4304506-5 (Version None)
Quarter: 2004Q1

REPORT INFORMATION
  Report Type: 
  Country: None (occurrence: None)
  Receive Date: 20040224
  Receipt Date: 20040212
  Transmission Date: 20041129
  Serious: Yes (Hospitalization)
  Sender: FDA-Public Use
  Company Number: 2004199206FR

PATIENT
  Age: 66 Year
  Sex: Male

DRUGS (5)
  1. CELEBREX [Suspect]
     Indication: ARTHRALGIA
     Dosage: 200 MG, QD, ORAL
     Route: 048
  2. CHLORPROGUANIL (CHLORPROGUANIL) [Concomitant]
  3. INDAPAMIDE [Concomitant]
  4. DILTIAZEM [Concomitant]
  5. IRBESARTAN (IRBESARTAN) [Concomitant]

REACTIONS (3)
  - ABDOMINAL PAIN [None]
  - DRUG INTERACTION [None]
  - VOMITING [None]
